FAERS Safety Report 4973590-8 (Version None)
Quarter: 2006Q1

REPORT INFORMATION
  Report Type: 
  Country: None (occurrence: None)
  Receive Date: 20060215
  Receipt Date: 20051027
  Transmission Date: 20060701
  Serious: No
  Sender: FDA-Public Use
  Company Number: USA0510112042

PATIENT
  Age: 60 Year
  Sex: Male

DRUGS (10)
  1. STRATTERA [Suspect]
     Indication: ATTENTION DEFICIT/HYPERACTIVITY DISORDER
     Dosage: 100 MG,DAILY (1/D)
     Dates: start: 20051001
  2. CIALIS [Suspect]
     Indication: ERECTILE DYSFUNCTION
     Dosage: 20 MG, DAILY (1/D)
     Dates: start: 20050501
  3. WELLBUTRIN [Concomitant]
  4. NEURONTIN [Concomitant]
  5. TRILEPTAL [Concomitant]
  6. CLONAZEPAM [Concomitant]
  7. ALEVE (CAPLET) [Concomitant]
  8. HERBAL SUPPLEMENTS [Concomitant]
  9. VIAGRA [Concomitant]
  10. .. [Concomitant]

REACTIONS (8)
  - DRUG EFFECT DECREASED [None]
  - DRUG INEFFECTIVE [None]
  - DRUG INTERACTION [None]
  - ERECTILE DYSFUNCTION [None]
  - FEELING ABNORMAL [None]
  - HEAD DISCOMFORT [None]
  - URINARY INCONTINENCE [None]
  - URINE OUTPUT DECREASED [None]
